FAERS Safety Report 26112023 (Version 1)
Quarter: 2025Q4

REPORT INFORMATION
  Report Type: Report from Study
  Country: EU (occurrence: EU)
  Receive Date: 20251202
  Receipt Date: 20251202
  Transmission Date: 20260118
  Serious: Yes (Other)
  Sender: ABBVIE
  Company Number: EU-ABBVIE-6570280

PATIENT
  Age: 70 Year
  Sex: Male

DRUGS (12)
  1. VENETOCLAX [Suspect]
     Active Substance: VENETOCLAX
     Indication: Acute myeloid leukaemia
     Dosage: RAMP- UP DOSE
     Route: 048
     Dates: start: 20250128, end: 20250129
  2. VENETOCLAX [Suspect]
     Active Substance: VENETOCLAX
     Indication: Acute myeloid leukaemia
     Dosage: RAMP- UP DOSE
     Route: 048
     Dates: start: 20250129, end: 20250130
  3. VENETOCLAX [Suspect]
     Active Substance: VENETOCLAX
     Indication: Acute myeloid leukaemia
     Dosage: END OF CYCLE(28 DAYS)
     Route: 048
     Dates: start: 20250130, end: 20250227
  4. VENETOCLAX [Suspect]
     Active Substance: VENETOCLAX
     Indication: Acute myeloid leukaemia
     Dosage: DOSE INTERRUPTED
     Route: 048
     Dates: start: 20250304, end: 20250318
  5. VENETOCLAX [Suspect]
     Active Substance: VENETOCLAX
     Indication: Acute myeloid leukaemia
     Dosage: RAMP- UP DOSE
     Route: 048
     Dates: start: 20250708, end: 20250709
  6. VENETOCLAX [Suspect]
     Active Substance: VENETOCLAX
     Indication: Acute myeloid leukaemia
     Dosage: RAMP- UP DOSE
     Route: 048
     Dates: start: 20250709, end: 20250710
  7. VENETOCLAX [Suspect]
     Active Substance: VENETOCLAX
     Indication: Acute myeloid leukaemia
     Dosage: END OF CYCLE(28 DAYS)
     Route: 048
     Dates: start: 20250710, end: 20250804
  8. VENETOCLAX [Suspect]
     Active Substance: VENETOCLAX
     Indication: Acute myeloid leukaemia
     Dosage: END OF CYCLE(28 DAYS)
     Route: 048
     Dates: start: 20250805, end: 20250902
  9. AZACITIDINE [Suspect]
     Active Substance: AZACITIDINE
     Indication: Acute myeloid leukaemia
     Dosage: END OF CYCLE(7 DAYS)
     Route: 065
     Dates: start: 20250128, end: 20250207
  10. AZACITIDINE [Suspect]
     Active Substance: AZACITIDINE
     Indication: Acute myeloid leukaemia
     Dosage: END OF CYCLE(7 DAYS)
     Route: 065
     Dates: start: 20250708, end: 20250717
  11. AZACITIDINE [Suspect]
     Active Substance: AZACITIDINE
     Indication: Acute myeloid leukaemia
     Dosage: END OF CYCLE(7 DAYS)
     Route: 065
     Dates: start: 20250304, end: 20250313
  12. AZACITIDINE [Suspect]
     Active Substance: AZACITIDINE
     Indication: Acute myeloid leukaemia
     Dosage: END OF CYCLE(7 DAYS)
     Route: 065
     Dates: start: 20250805, end: 20250814

REACTIONS (1)
  - Tuberculosis [Recovered/Resolved]

NARRATIVE: CASE EVENT DATE: 20250606
